FAERS Safety Report 10474324 (Version 1)
Quarter: 2014Q3

REPORT INFORMATION
  Report Type: Spontaneous
  Country: US (occurrence: US)
  Receive Date: 20140924
  Receipt Date: 20140924
  Transmission Date: 20150326
  Serious: No
  Sender: FDA-Public Use
  Company Number: US-009507513-1409USA009741

PATIENT
  Age: 43 Year
  Sex: Female

DRUGS (3)
  1. DESOGEN [Suspect]
     Active Substance: DESOGESTREL\ETHINYL ESTRADIOL
     Indication: CONTRACEPTION
     Dosage: 28 TABLETS, DAILY
     Route: 048
     Dates: start: 1992
  2. VITAMINS (UNSPECIFIED) [Concomitant]
     Active Substance: VITAMINS
  3. ALLEGRA-D [Concomitant]
     Active Substance: FEXOFENADINE\PSEUDOEPHEDRINE

REACTIONS (3)
  - Therapeutic response changed [Unknown]
  - Migraine [Unknown]
  - Vomiting [Unknown]

NARRATIVE: CASE EVENT DATE: 2011
